FAERS Safety Report 7430372-5 (Version None)
Quarter: 2011Q2

REPORT INFORMATION
  Report Type: 
  Country: None (occurrence: None)
  Receive Date: 20110421
  Receipt Date: 20100303
  Transmission Date: 20111010
  Serious: No
  Sender: FDA-Public Use
  Company Number: US-ASTRAZENECA-2010SE09309

PATIENT
  Sex: Female

DRUGS (4)
  1. NEXIUM [Suspect]
     Route: 048
  2. TOPROL-XL [Suspect]
     Route: 048
  3. NEXIUM [Suspect]
     Route: 048
  4. NEXIUM [Suspect]
     Route: 048

REACTIONS (4)
  - NAUSEA [None]
  - DRUG INEFFECTIVE [None]
  - GASTROOESOPHAGEAL REFLUX DISEASE [None]
  - DYSPEPSIA [None]
